FAERS Safety Report 6612630-7 (Version None)
Quarter: 2010Q1

REPORT INFORMATION
  Report Type: 
  Country: None (occurrence: None)
  Receive Date: 20100303
  Receipt Date: 20100220
  Transmission Date: 20100710
  Serious: No
  Sender: FDA-Public Use
  Company Number: US-B.I. PHARMACEUTICALS,INC./RIDGEFIELD-2010-BP-02192BP

PATIENT
  Sex: Male

DRUGS (3)
  1. ZANTAC 150 [Suspect]
     Indication: DYSPEPSIA
     Route: 048
     Dates: start: 20100119
  2. KLONOPIN [Concomitant]
     Indication: ANXIETY
  3. ASPIRIN [Concomitant]

REACTIONS (2)
  - DRUG EFFECT DECREASED [None]
  - DYSPEPSIA [None]
